FAERS Safety Report 10349612 (Version 2)
Quarter: 2014Q3

REPORT INFORMATION
  Report Type: Spontaneous
  Country: US (occurrence: US)
  Receive Date: 20140730
  Receipt Date: 20140925
  Transmission Date: 20150326
  Serious: Yes (Death, Hospitalization, Disabling)
  Sender: FDA-Public Use
  Company Number: US-ROCHE-1437690

PATIENT
  Age: 59 Year
  Sex: Female
  Weight: 51.76 kg

DRUGS (22)
  1. PERJETA [Suspect]
     Active Substance: PERTUZUMAB
     Indication: BREAST CANCER METASTATIC
     Route: 065
  2. DENOSUMAB [Concomitant]
     Active Substance: DENOSUMAB
  3. LEVOFLOXACIN [Concomitant]
     Active Substance: LEVOFLOXACIN
     Route: 065
     Dates: start: 20140206
  4. BACLOFEN. [Concomitant]
     Active Substance: BACLOFEN
  5. ZOFRAN [Concomitant]
     Active Substance: ONDANSETRON HYDROCHLORIDE
  6. DOCETAXEL [Suspect]
     Active Substance: DOCETAXEL
     Indication: BREAST CANCER METASTATIC
     Route: 065
  7. ATIVAN [Concomitant]
     Active Substance: LORAZEPAM
  8. OXYCODONE [Concomitant]
     Active Substance: OXYCODONE
  9. LACTULOSE. [Concomitant]
     Active Substance: LACTULOSE
  10. PROCHLORPERAZINE. [Concomitant]
     Active Substance: PROCHLORPERAZINE
  11. SENOKOT [Concomitant]
     Active Substance: SENNOSIDES
  12. CYANOCOBALAMIN. [Concomitant]
     Active Substance: CYANOCOBALAMIN
  13. ASPIRIN. [Concomitant]
     Active Substance: ASPIRIN
  14. DEXAMETHASONE. [Concomitant]
     Active Substance: DEXAMETHASONE
  15. OXYCODONE HYDROCHLORIDE. [Concomitant]
     Active Substance: OXYCODONE HYDROCHLORIDE
  16. XELODA [Suspect]
     Active Substance: CAPECITABINE
     Indication: BREAST CANCER
     Route: 048
  17. TYKERB [Suspect]
     Active Substance: LAPATINIB DITOSYLATE
     Indication: BREAST CANCER
     Route: 048
     Dates: start: 20140202
  18. HERCEPTIN [Suspect]
     Active Substance: TRASTUZUMAB
     Indication: BREAST CANCER METASTATIC
     Route: 065
  19. KADCYLA [Suspect]
     Active Substance: ADO-TRASTUZUMAB EMTANSINE
     Indication: BREAST CANCER METASTATIC
     Route: 065
  20. PACLITAXEL PROTEIN-BOUND/ALBUMIN [Suspect]
     Active Substance: PACLITAXEL
     Indication: BREAST CANCER METASTATIC
     Route: 065
  21. ONDANSETRON HYDROCHLORIDE. [Concomitant]
     Active Substance: ONDANSETRON HYDROCHLORIDE
  22. HYDROXYCHLOROQUINE [Concomitant]
     Active Substance: HYDROXYCHLOROQUINE
     Dosage: HYDROXYCHLOROQUINE S04
     Route: 065

REACTIONS (15)
  - Metastases to lung [Unknown]
  - Gait disturbance [Unknown]
  - Constipation [Unknown]
  - Asthenia [Unknown]
  - Oral candidiasis [Unknown]
  - Oedema peripheral [Unknown]
  - Speech disorder [Unknown]
  - Performance status decreased [Unknown]
  - Decubitus ulcer [Unknown]
  - Ecchymosis [Unknown]
  - Disease progression [Fatal]
  - Dyspnoea [Unknown]
  - Nausea [Unknown]
  - Weight decreased [Unknown]
  - Escherichia urinary tract infection [Unknown]

NARRATIVE: CASE EVENT DATE: 20140206
